FAERS Safety Report 6850280-8 (Version None)
Quarter: 2010Q3

REPORT INFORMATION
  Report Type: 
  Country: None (occurrence: None)
  Receive Date: 20100716
  Receipt Date: 20080103
  Transmission Date: 20110219
  Serious: No
  Sender: FDA-Public Use
  Company Number: US-PFIZER INC-2007086929

PATIENT
  Sex: Male
  Weight: 113.4 kg

DRUGS (6)
  1. CHANTIX [Suspect]
     Indication: SMOKING CESSATION THERAPY
     Dates: start: 20071012
  2. OXYCONTIN [Concomitant]
  3. OXYCODONE HCL [Concomitant]
  4. GABITRIL [Concomitant]
  5. LISINOPRIL [Concomitant]
  6. LIPITOR [Concomitant]

REACTIONS (3)
  - DISCOMFORT [None]
  - DIZZINESS [None]
  - HOT FLUSH [None]
